FAERS Safety Report 7465900-7 (Version None)
Quarter: 2011Q2

REPORT INFORMATION
  Report Type: 
  Country: None (occurrence: None)
  Receive Date: 20110509
  Receipt Date: 20100427
  Transmission Date: 20111010
  Serious: No
  Sender: FDA-Public Use
  Company Number: US-ALEXION-A201000291

PATIENT
  Sex: Female

DRUGS (14)
  1. NEXIUM [Concomitant]
     Dosage: 40 MG, QD
     Route: 048
  2. SOLIRIS [Suspect]
     Dosage: 900 MG, Q12D
     Route: 042
     Dates: start: 20100430
  3. NORVASC [Concomitant]
     Dosage: UNK
     Route: 048
  4. EXJADE [Concomitant]
     Dosage: UNK
     Route: 048
  5. NEUPOGEN [Concomitant]
     Dosage: UNK
  6. SOLIRIS [Suspect]
     Indication: PAROXYSMAL NOCTURNAL HAEMOGLOBINURIA
     Dosage: 600 MG, QW
     Route: 042
     Dates: start: 20090916, end: 20091006
  7. SOLIRIS [Suspect]
     Dosage: 900 MG, UNK
     Route: 042
     Dates: start: 20091013
  8. PROCRIT                            /00909301/ [Concomitant]
     Dosage: UNK
  9. NEURONTIN [Concomitant]
     Dosage: 300 MG, TID
     Route: 048
  10. GLIPIZIDE [Concomitant]
     Dosage: 5 MG, QD
     Route: 048
  11. ZOFRAN [Concomitant]
     Dosage: UNK
     Route: 048
  12. SIMVASTATIN [Concomitant]
     Dosage: UNK
     Route: 048
  13. CYCLOSPORINE [Concomitant]
     Dosage: UNK
     Route: 048
  14. BENAZEPRIL HYDROCHLORIDE [Concomitant]
     Dosage: UNK
     Route: 048

REACTIONS (4)
  - PAIN [None]
  - BLOOD LACTATE DEHYDROGENASE INCREASED [None]
  - BLOOD PRODUCT TRANSFUSION DEPENDENT [None]
  - CONDITION AGGRAVATED [None]
